FAERS Safety Report 16614907 (Version 1)
Quarter: 2019Q3

REPORT INFORMATION
  Report Type: Spontaneous
  Country: LB (occurrence: LB)
  Receive Date: 20190723
  Receipt Date: 20190723
  Transmission Date: 20191004
  Serious: Yes (Death, Other)
  Sender: FDA-Public Use
  Company Number: LB-AMGEN-LBNSP2019115860

PATIENT
  Age: 73 Year
  Sex: Male

DRUGS (7)
  1. NPLATE [Suspect]
     Active Substance: ROMIPLOSTIM
     Indication: THROMBOCYTOPENIA
     Dosage: 250 MICROGRAM, QWK
     Route: 058
     Dates: start: 201705, end: 2017
  2. NPLATE [Suspect]
     Active Substance: ROMIPLOSTIM
     Dosage: 250 MICROGRAM, Q2WK
     Route: 058
     Dates: start: 2017, end: 201905
  3. NIVOLUMAB [Concomitant]
     Active Substance: NIVOLUMAB
     Indication: LUNG SQUAMOUS CELL CARCINOMA METASTATIC
     Dosage: 30 UNK, Q2WK
     Dates: start: 201711
  4. ASPIRINE [Concomitant]
     Active Substance: ASPIRIN
     Indication: CORONARY ARTERY DISEASE
     Dosage: UNK
     Dates: end: 2017
  5. ZOLEDRONIC ACID [Concomitant]
     Active Substance: ZOLEDRONIC ACID
     Dosage: UNK UNK, Q4WK
     Dates: start: 2017
  6. COLCHICINE. [Concomitant]
     Active Substance: COLCHICINE
     Indication: CORONARY ARTERY DISEASE
     Dosage: UNK
  7. ASPIRINE [Concomitant]
     Active Substance: ASPIRIN
     Dosage: UNK
     Dates: start: 201711

REACTIONS (3)
  - Cardiac arrest [Fatal]
  - Metastases to bone [Unknown]
  - Off label use [Unknown]

NARRATIVE: CASE EVENT DATE: 201711
